FAERS Safety Report 6507324-2 (Version None)
Quarter: 2009Q4

REPORT INFORMATION
  Report Type: 
  Country: None (occurrence: None)
  Receive Date: 20091221
  Receipt Date: 20091217
  Transmission Date: 20100525
  Serious: Yes (Death)
  Sender: FDA-Public Use
  Company Number: PHHY2009US56446

PATIENT
  Age: 53 Year
  Sex: Female

DRUGS (4)
  1. BASILIXIMAB [Suspect]
     Indication: GRAFT VERSUS HOST DISEASE
  2. RITUXIMAB [Suspect]
     Indication: GRAFT VERSUS HOST DISEASE
  3. CORTICOSTEROID NOS [Suspect]
     Indication: GRAFT VERSUS HOST DISEASE
  4. TACROLIMUS [Concomitant]

REACTIONS (1)
  - SEPSIS [None]
